FAERS Safety Report 11116034 (Version 1)
Quarter: 2015Q2

REPORT INFORMATION
  Report Type: Spontaneous
  Country: US (occurrence: None)
  Receive Date: 20150514
  Receipt Date: 20150514
  Transmission Date: 20150821
  Serious: Yes (Other)
  Sender: FDA-Public Use
  Company Number: None

PATIENT
  Age: 52 Year
  Sex: Female

DRUGS (1)
  1. COPAXONE [Suspect]
     Active Substance: GLATIRAMER ACETATE
     Indication: MULTIPLE SCLEROSIS
     Route: 058
     Dates: start: 20150303, end: 20150430

REACTIONS (6)
  - Mood altered [None]
  - Blood pressure increased [None]
  - Therapy cessation [None]
  - Rash [None]
  - Pain [None]
  - Epistaxis [None]

NARRATIVE: CASE EVENT DATE: 20150325
